FAERS Safety Report 9604088 (Version 1)
Quarter: 2013Q4

REPORT INFORMATION
  Report Type: Spontaneous
  Country: US (occurrence: US)
  Receive Date: 20131008
  Receipt Date: 20131008
  Transmission Date: 20140711
  Serious: No
  Sender: FDA-Public Use
  Company Number: US-009507513-1309USA013281

PATIENT
  Sex: Female
  Weight: 68.27 kg

DRUGS (9)
  1. PEGINTRON [Suspect]
     Dosage: INJECT 120 MICROGRAM/0.5 ML, ONCE A WEEK
     Route: 058
  2. RIBAPAK [Suspect]
     Dosage: 1000/DAY
  3. NEUPOGEN [Concomitant]
     Dosage: 300/0.5
  4. PROCRIT [Concomitant]
     Dosage: 40000/ML
  5. VITAMINS (UNSPECIFIED) [Concomitant]
     Route: 048
  6. CITALOPRAM [Concomitant]
     Dosage: 10 MG
     Route: 048
  7. OMEPRAZOLE [Concomitant]
     Dosage: 10 MG
     Route: 048
  8. TRUVADA [Concomitant]
     Route: 048
  9. LACTULOSE [Concomitant]
     Dosage: 20GM/30

REACTIONS (7)
  - Ammonia increased [Unknown]
  - Anaemia [Unknown]
  - Red blood cell count decreased [Unknown]
  - White blood cell count decreased [Unknown]
  - Confusional state [Unknown]
  - Rash [Unknown]
  - Alopecia [Unknown]
